FAERS Safety Report 22391121 (Version 3)
Quarter: 2023Q2

REPORT INFORMATION
  Report Type: Report from Study
  Country: US (occurrence: US)
  Receive Date: 20230601
  Receipt Date: 20230616
  Transmission Date: 20230721
  Serious: No
  Sender: FDA-Public Use
  Company Number: US-ABBVIE-5185679

PATIENT
  Age: 58 Year
  Sex: Male

DRUGS (2)
  1. RINVOQ [Suspect]
     Active Substance: UPADACITINIB
     Indication: Psoriasis
     Dosage: FORM STRENGTH: 45MG
     Route: 048
     Dates: start: 20230301, end: 202305
  2. RINVOQ [Suspect]
     Active Substance: UPADACITINIB
     Indication: Psoriasis
     Dosage: FORM STRENGTH: 30
     Route: 048
     Dates: start: 202306

REACTIONS (4)
  - Skin laceration [Recovered/Resolved]
  - Wound cellulitis [Recovering/Resolving]
  - Infection [Recovering/Resolving]
  - Erythema [Recovering/Resolving]

NARRATIVE: CASE EVENT DATE: 20230501
